FAERS Safety Report 7440645-8 (Version None)
Quarter: 2011Q2

REPORT INFORMATION
  Report Type: 
  Country: None (occurrence: None)
  Receive Date: 20110427
  Receipt Date: 20110420
  Transmission Date: 20111010
  Serious: Yes (Other)
  Sender: FDA-Public Use
  Company Number: FR-BAXTER-2011BH012550

PATIENT
  Age: 58 Year
  Sex: Female

DRUGS (12)
  1. HOLOXAN BAXTER [Suspect]
     Indication: ENDOMETRIAL SARCOMA
     Route: 042
     Dates: start: 20101227
  2. RELISTOR [Suspect]
     Indication: SUBILEUS
     Route: 058
     Dates: start: 20101231, end: 20110222
  3. FENTANYL [Concomitant]
     Indication: PRODUCT USED FOR UNKNOWN INDICATION
     Route: 065
  4. NORSET [Concomitant]
     Indication: PRODUCT USED FOR UNKNOWN INDICATION
     Route: 065
  5. PRIMPERAN TAB [Concomitant]
     Indication: PRODUCT USED FOR UNKNOWN INDICATION
     Route: 065
  6. UROMITEXAN BAXTER [Suspect]
     Indication: PRODUCT USED FOR UNKNOWN INDICATION
     Route: 065
     Dates: start: 20101227
  7. SOLUPRED [Concomitant]
     Indication: PRODUCT USED FOR UNKNOWN INDICATION
     Route: 065
  8. DOXORUBICIN GENERIC [Suspect]
     Indication: ENDOMETRIAL SARCOMA
     Route: 042
     Dates: start: 20101227, end: 20110207
  9. DOXORUBICIN GENERIC [Suspect]
     Route: 042
     Dates: start: 20110308
  10. FORLAX [Concomitant]
     Indication: PRODUCT USED FOR UNKNOWN INDICATION
     Route: 065
  11. LOVENOX [Concomitant]
     Indication: PRODUCT USED FOR UNKNOWN INDICATION
     Route: 065
  12. HYDROXYZINE [Suspect]
     Indication: PREMEDICATION
     Route: 065
     Dates: start: 20101227

REACTIONS (1)
  - ANGLE CLOSURE GLAUCOMA [None]
